FAERS Safety Report 23245725 (Version 1)
Quarter: 2023Q4

REPORT INFORMATION
  Report Type: Other
  Country: CA (occurrence: CA)
  Receive Date: 20231130
  Receipt Date: 20231130
  Transmission Date: 20240109
  Serious: Yes (Hospitalization, Other)
  Sender: FDA-Public Use
  Company Number: CA-APOTEX-2023AP016990

PATIENT
  Age: 32 Year
  Sex: Female

DRUGS (5)
  1. LETROZOLE [Suspect]
     Active Substance: LETROZOLE
     Indication: Breast cancer metastatic
     Dosage: 2.5 MILLIGRAM, QD
     Route: 048
  2. ELIGARD [Suspect]
     Active Substance: LEUPROLIDE ACETATE
     Indication: Breast cancer metastatic
     Dosage: 22.5 MILLIGRAM
     Route: 058
  3. IBRANCE [Suspect]
     Active Substance: PALBOCICLIB
     Indication: Product used for unknown indication
     Dosage: 125 MILLIGRAM, QD
     Route: 048
  4. KISQALI [Suspect]
     Active Substance: RIBOCICLIB
     Indication: Breast cancer metastatic
     Dosage: 600 MILLIGRAM
     Route: 048
  5. SPIKEVAX (ELASOMERAN) [Suspect]
     Active Substance: ELASOMERAN
     Indication: COVID-19 prophylaxis
     Dosage: UNK
     Route: 065

REACTIONS (15)
  - Cardiac failure congestive [Unknown]
  - Ascites [Unknown]
  - Condition aggravated [Unknown]
  - Disease progression [Unknown]
  - Off label use [Unknown]
  - Pericardial effusion [Unknown]
  - Pleural effusion [Unknown]
  - Drug-induced liver injury [Unknown]
  - Hypertransaminasaemia [Unknown]
  - Dyspnoea [Unknown]
  - Vomiting [Unknown]
  - Malaise [Unknown]
  - Nausea [Unknown]
  - Fatigue [Unknown]
  - Hepatic enzyme increased [Unknown]
